FAERS Safety Report 20150184 (Version 2)
Quarter: 2021Q4

REPORT INFORMATION
  Report Type: Spontaneous
  Country: US (occurrence: US)
  Receive Date: 20211206
  Receipt Date: 20211220
  Transmission Date: 20220303
  Serious: Yes (Death, Hospitalization, Other)
  Sender: FDA-Public Use
  Company Number: US-AMGEN-USASP2021190790

PATIENT

DRUGS (6)
  1. CARFILZOMIB [Suspect]
     Active Substance: CARFILZOMIB
     Indication: Plasma cell myeloma
     Dosage: UNK
     Route: 065
  2. BORTEZOMIB [Concomitant]
     Active Substance: BORTEZOMIB
     Indication: Plasma cell myeloma
     Dosage: UNK
     Route: 065
  3. IXAZOMIB [Concomitant]
     Active Substance: IXAZOMIB
     Indication: Plasma cell myeloma
     Dosage: UNK
     Route: 065
  4. THALIDOMIDE [Concomitant]
     Active Substance: THALIDOMIDE
     Indication: Plasma cell myeloma
     Dosage: UNK
     Route: 065
  5. LENALIDOMIDE [Concomitant]
     Active Substance: LENALIDOMIDE
     Indication: Plasma cell myeloma
     Dosage: UNK
     Route: 065
  6. POMALIDOMIDE [Concomitant]
     Active Substance: POMALIDOMIDE
     Indication: Plasma cell myeloma
     Dosage: UNK
     Route: 065

REACTIONS (32)
  - Death [Fatal]
  - Hospitalisation [Unknown]
  - Parkinson^s disease [Unknown]
  - Failure to thrive [Unknown]
  - Neoplasm malignant [Unknown]
  - Chronic kidney disease [Unknown]
  - Diabetes mellitus [Unknown]
  - Dementia [Unknown]
  - Neuropathy peripheral [Unknown]
  - Atrial fibrillation [Unknown]
  - Cardiac failure [Unknown]
  - Coronary artery disease [Unknown]
  - Cerebrovascular disorder [Unknown]
  - Liver disorder [Unknown]
  - Lung disorder [Unknown]
  - Thyroid disorder [Unknown]
  - Osteoporosis [Unknown]
  - Incontinence [Unknown]
  - Arthritis [Unknown]
  - Fall [Unknown]
  - Gait disturbance [Unknown]
  - Intermittent claudication [Unknown]
  - Depression [Unknown]
  - Hypoacusis [Unknown]
  - Visual impairment [Unknown]
  - Weight decreased [Unknown]
  - Anxiety [Unknown]
  - Anaemia [Unknown]
  - Hypertension [Unknown]
  - Fatigue [Unknown]
  - Asthenia [Unknown]
  - Pain [Unknown]
